FAERS Safety Report 12953457 (Version 1)
Quarter: 2016Q4

REPORT INFORMATION
  Report Type: Other
  Country: BR (occurrence: BR)
  Receive Date: 20161118
  Receipt Date: 20161118
  Transmission Date: 20170207
  Serious: Yes (Hospitalization, Congenital Anomaly)
  Sender: FDA-Public Use
  Company Number: BR-LUPIN PHARMACEUTICALS INC.-2016-05101

PATIENT
  Sex: Male
  Weight: 1.05 kg

DRUGS (2)
  1. BETAMETASONA [Concomitant]
     Active Substance: BETAMETHASONE
     Indication: PRODUCT USED FOR UNKNOWN INDICATION
     Dosage: GIVEN IN TWO CYCLES
     Route: 065
  2. LOSARTAN. [Suspect]
     Active Substance: LOSARTAN
     Indication: HYPERTENSION
     Route: 064

REACTIONS (4)
  - Oligohydramnios [Unknown]
  - Foetal exposure during pregnancy [Unknown]
  - Foetal malformation [Unknown]
  - Ductus venosus agenesis [Unknown]
